FAERS Safety Report 22607001 (Version 3)
Quarter: 2023Q2

REPORT INFORMATION
  Report Type: Report from Study
  Country: US (occurrence: US)
  Receive Date: 20230615
  Receipt Date: 20230622
  Transmission Date: 20230722
  Serious: Yes (Other)
  Sender: FDA-Public Use
  Company Number: US-SEATTLE GENETICS-2023SGN05678

PATIENT
  Age: 84 Year
  Sex: Female

DRUGS (1)
  1. TUCATINIB [Suspect]
     Active Substance: TUCATINIB
     Indication: Product used for unknown indication
     Dosage: 150 MG
     Route: 065

REACTIONS (11)
  - Pneumonia [Unknown]
  - Ulcer [Unknown]
  - Stress [Unknown]
  - Asthenia [Unknown]
  - Tumour marker increased [Unknown]
  - Sinus disorder [Unknown]
  - Pollution [Unknown]
  - Irritability [Unknown]
  - Dysphonia [Unknown]
  - Abdominal pain upper [Unknown]
  - Anxiety [Unknown]

NARRATIVE: CASE EVENT DATE: 20230401
